FAERS Safety Report 5498563-0 (Version None)
Quarter: 2007Q4

REPORT INFORMATION
  Report Type: 
  Country: None (occurrence: None)
  Receive Date: 20071025
  Receipt Date: 20071025
  Transmission Date: 20080405
  Serious: Yes (Death)
  Sender: FDA-Public Use
  Company Number: None

PATIENT
  Sex: Female
  Weight: 60.1 kg

DRUGS (2)
  1. CETUXIMAB [Suspect]
     Indication: BREAST CANCER STAGE IV
     Dosage: 250MG/M2  WEEKLY  IV
     Route: 042
     Dates: start: 20070814, end: 20070918
  2. CARBOPLATIN [Suspect]
     Indication: BREAST CANCER STAGE IV
     Dosage: AUC2   3/4 WEEKS  IV
     Route: 042
     Dates: start: 20070814, end: 20070918

REACTIONS (2)
  - DISEASE PROGRESSION [None]
  - HEPATOMEGALY [None]
